FAERS Safety Report 4910388-0 (Version None)
Quarter: 2006Q1

REPORT INFORMATION
  Report Type: 
  Country: None (occurrence: None)
  Receive Date: 20060213
  Receipt Date: 20050706
  Transmission Date: 20060701
  Serious: Yes (Death)
  Sender: FDA-Public Use
  Company Number: US-MERCK-0507USA00919

PATIENT
  Age: 62 Year
  Sex: Male
  Weight: 91 kg

DRUGS (4)
  1. VIOXX [Suspect]
     Indication: ARTHRITIS
     Route: 048
     Dates: start: 19990501, end: 19991101
  2. BEXTRA [Suspect]
     Route: 065
  3. CELEBREX [Suspect]
     Route: 065
  4. VALIUM [Concomitant]
     Route: 065

REACTIONS (2)
  - CARDIAC FAILURE [None]
  - DEATH [None]
